FAERS Safety Report 8577802-3 (Version None)
Quarter: 2012Q3

REPORT INFORMATION
  Report Type: 
  Country: None (occurrence: None)
  Receive Date: 20120808
  Receipt Date: 20120731
  Transmission Date: 20120928
  Serious: No
  Sender: FDA-Public Use
  Company Number: US-BIOGENIDEC-2012BI018757

PATIENT
  Age: 58 Year
  Sex: Female

DRUGS (2)
  1. TYSABRI [Suspect]
     Indication: MULTIPLE SCLEROSIS
     Route: 042
     Dates: start: 20120524
  2. AVONEX [Concomitant]
     Indication: MULTIPLE SCLEROSIS
     Route: 030
     Dates: start: 19960401

REACTIONS (11)
  - PAIN IN EXTREMITY [None]
  - CHEST PAIN [None]
  - MUSCLE SPASMS [None]
  - DYSPNOEA [None]
  - SENSORY DISTURBANCE [None]
  - HEADACHE [None]
  - DEPRESSED MOOD [None]
  - INFLUENZA [None]
  - PAIN [None]
  - NAUSEA [None]
  - ABDOMINAL PAIN UPPER [None]
